FAERS Safety Report 8456060 (Version 3)
Quarter: 2013Q1

REPORT INFORMATION
  Report Type: Spontaneous
  Country: US (occurrence: US)
  Receive Date: 20120313
  Receipt Date: 20130329
  Transmission Date: 20140127
  Serious: Yes (Death, Hospitalization, Congenital Anomaly)
  Sender: FDA-Public Use
  Company Number: US-GLAXOSMITHKLINE-A0930795A

PATIENT
  Age: 0 Year
  Sex: Male

DRUGS (9)
  1. PAXIL [Suspect]
     Indication: HEADACHE
     Dosage: 25MG TWICE PER DAY
     Route: 064
     Dates: start: 20051218, end: 20060618
  2. TOPROL XL [Concomitant]
     Indication: HYPERTENSION
     Route: 064
     Dates: start: 2006
  3. METHYLDOPA [Concomitant]
     Indication: HYPERTENSION
     Route: 064
     Dates: start: 2006
  4. FAMOTIDINE [Concomitant]
     Indication: GASTROOESOPHAGEAL REFLUX DISEASE
     Route: 064
     Dates: start: 2006
  5. PRENATAL VITAMINS [Concomitant]
     Route: 064
  6. HYDROCHLOROTHIAZIDE [Concomitant]
  7. ALDOMET [Concomitant]
  8. FERROUS SULFATE [Concomitant]
  9. COLACE [Concomitant]

REACTIONS (10)
  - Hypoplastic left heart syndrome [Fatal]
  - Hypoplastic right heart syndrome [Unknown]
  - Mitral valve disease [Unknown]
  - Congenital aortic atresia [Unknown]
  - Patent ductus arteriosus [Unknown]
  - Atrial septal defect [Unknown]
  - Atrial septal defect [Unknown]
  - Pleural effusion [Unknown]
  - Pericardial effusion [Unknown]
  - Foetal exposure during pregnancy [Unknown]
